FAERS Safety Report 17038441 (Version 1)
Quarter: 2019Q4

REPORT INFORMATION
  Report Type: Spontaneous
  Country: JP (occurrence: JP)
  Receive Date: 20191115
  Receipt Date: 20191115
  Transmission Date: 20200122
  Serious: Yes (Other)
  Sender: FDA-Public Use
  Company Number: JP-BAYER-2019-201064

PATIENT
  Age: 9 Decade
  Sex: Male

DRUGS (2)
  1. STIVARGA [Suspect]
     Active Substance: REGORAFENIB
     Indication: COLON CANCER RECURRENT
     Dosage: 80 MG, QD
     Route: 048
     Dates: start: 20190815, end: 20191101
  2. STIVARGA [Suspect]
     Active Substance: REGORAFENIB
     Indication: COLON CANCER RECURRENT
     Dosage: 160 MG, QD
     Route: 048
     Dates: start: 20190801, end: 20190806

REACTIONS (4)
  - Neoplasm progression [Not Recovered/Not Resolved]
  - Diarrhoea [Recovered/Resolved]
  - Palmar-plantar erythrodysaesthesia syndrome [Recovered/Resolved]
  - Colon cancer recurrent [Not Recovered/Not Resolved]

NARRATIVE: CASE EVENT DATE: 20190806
